FAERS Safety Report 11459644 (Version 1)
Quarter: 2015Q3

REPORT INFORMATION
  Report Type: Report from Study
  Country: US (occurrence: US)
  Receive Date: 20150904
  Receipt Date: 20150904
  Transmission Date: 20151125
  Serious: Yes (Death, Hospitalization, Other)
  Sender: FDA-Public Use
  Company Number: US-GILEAD-2015-0170490

PATIENT
  Age: 63 Year
  Sex: Female

DRUGS (11)
  1. AMBRISENTAN [Suspect]
     Active Substance: AMBRISENTAN
     Indication: PULMONARY ARTERIAL HYPERTENSION
     Dosage: 10 MG, QD
     Route: 048
     Dates: start: 201108, end: 201508
  2. FUROSEMIDE. [Concomitant]
     Active Substance: FUROSEMIDE
  3. OXYCODONE/APAP                     /01601701/ [Concomitant]
     Active Substance: ACETAMINOPHEN\OXYCODONE HYDROCHLORIDE
  4. TIOTROPIUM BROMIDE [Concomitant]
     Active Substance: TIOTROPIUM BROMIDE
     Route: 055
  5. MONTELUKAST [Concomitant]
     Active Substance: MONTELUKAST SODIUM
  6. WARFARIN [Concomitant]
     Active Substance: WARFARIN
  7. MOMETASONE FUROATE. [Concomitant]
     Active Substance: MOMETASONE FUROATE
  8. SILDENAFIL. [Concomitant]
     Active Substance: SILDENAFIL
  9. SPIRONOLACTONE. [Concomitant]
     Active Substance: SPIRONOLACTONE
  10. DILTIAZEM [Concomitant]
     Active Substance: DILTIAZEM
  11. ALBUTEROL HFA [Concomitant]
     Active Substance: ALBUTEROL SULFATE

REACTIONS (6)
  - Clostridium difficile infection [Not Recovered/Not Resolved]
  - Unevaluable event [Not Recovered/Not Resolved]
  - Lung infection [Not Recovered/Not Resolved]
  - Pneumonia [Not Recovered/Not Resolved]
  - Hypoxia [Not Recovered/Not Resolved]
  - Death [Fatal]

NARRATIVE: CASE EVENT DATE: 20150824
